FAERS Safety Report 9694698 (Version 2)
Quarter: 2013Q4

REPORT INFORMATION
  Report Type: Report from Study
  Country: CA (occurrence: CA)
  Receive Date: 20131119
  Receipt Date: 20131119
  Transmission Date: 20140711
  Serious: Yes (Death, Other)
  Sender: FDA-Public Use
  Company Number: CA-ROCHE-1295805

PATIENT
  Age: 55 Year
  Sex: Female
  Weight: 86.4 kg

DRUGS (21)
  1. RITUXAN [Suspect]
     Indication: LEUKAEMIA
     Route: 042
     Dates: start: 20130827, end: 20130917
  2. RITUXAN [Suspect]
     Indication: GRAFT VERSUS HOST DISEASE
  3. INSULIN [Concomitant]
  4. ALENDRONATE [Concomitant]
  5. RABEPRAZOLE [Concomitant]
  6. AZITHROMYCIN [Concomitant]
  7. PROPRANOLOL [Concomitant]
  8. FLUCONAZOLE [Concomitant]
  9. FUROSEMIDE [Concomitant]
  10. ROSUVASTATIN [Concomitant]
  11. PREDNISONE [Concomitant]
     Route: 065
  12. PREDNISONE [Concomitant]
     Route: 065
  13. IBUPROFEN [Concomitant]
  14. VENLAFAXINE [Concomitant]
  15. ACYCLOVIR [Concomitant]
  16. HYDROCODONE HCL [Concomitant]
  17. FLUOROMETHOLONE [Concomitant]
     Route: 047
  18. CYCLOSPORIN [Concomitant]
     Dosage: DROPS
     Route: 065
  19. TARO-CLOBETASOL [Concomitant]
  20. VITAMIN B12 [Concomitant]
     Route: 065
  21. SPIRONOLACTONE [Concomitant]

REACTIONS (3)
  - Death [Fatal]
  - Pneumonia [Unknown]
  - Nausea [Not Recovered/Not Resolved]
